FAERS Safety Report 11219908 (Version 1)
Quarter: 2015Q2

REPORT INFORMATION
  Report Type: Spontaneous
  Country: US (occurrence: None)
  Receive Date: 20150624
  Receipt Date: 20150624
  Transmission Date: 20150821
  Serious: No
  Sender: FDA-Public Use
  Company Number: None

PATIENT
  Age: 61 Year
  Sex: Male
  Weight: 81.65 kg

DRUGS (3)
  1. CASODEX [Concomitant]
     Active Substance: BICALUTAMIDE
  2. BICALUTAMIDE. [Suspect]
     Active Substance: BICALUTAMIDE
     Indication: PROSTATE CANCER
     Dosage: ONE PILL/DAY  ONCE DAILY  TAKEN BY MOUTH
     Route: 048
     Dates: start: 20150615, end: 20150622
  3. FLOMAX [Concomitant]
     Active Substance: TAMSULOSIN HYDROCHLORIDE

REACTIONS (1)
  - Haematuria [None]

NARRATIVE: CASE EVENT DATE: 20150615
